FAERS Safety Report 22661960 (Version 1)
Quarter: 2023Q2

REPORT INFORMATION
  Report Type: Report from Study
  Country: CA (occurrence: CA)
  Receive Date: 20230630
  Receipt Date: 20230630
  Transmission Date: 20230722
  Serious: Yes (Other)
  Sender: FDA-Public Use
  Company Number: CA-HLS-202301355

PATIENT
  Age: 35 Year
  Sex: Male

DRUGS (4)
  1. CLOZARIL [Suspect]
     Active Substance: CLOZAPINE
     Indication: Product used for unknown indication
     Route: 048
     Dates: start: 20221207
  2. CLOZARIL [Suspect]
     Active Substance: CLOZAPINE
     Indication: Product used for unknown indication
     Dosage: 500MG
     Route: 048
     Dates: start: 2015
  3. ABILIFY [Suspect]
     Active Substance: ARIPIPRAZOLE
     Indication: Product used for unknown indication
     Dosage: 400 MG,  INTRAMUSCULAR, Q28 DAYS
     Route: 030
  4. PEG 33S0 [Concomitant]
     Indication: Product used for unknown indication
     Dosage: 17 GRAM/DOSE POWDER
     Route: 048

REACTIONS (14)
  - Lymphocyte count decreased [Unknown]
  - ECG signs of myocardial ischaemia [Unknown]
  - Monocyte count increased [Unknown]
  - Blood pressure increased [Unknown]
  - Extrapyramidal disorder [Unknown]
  - Tachycardia [Unknown]
  - International normalised ratio increased [Unknown]
  - Calcium ionised decreased [Unknown]
  - White blood cell count increased [Unknown]
  - Nucleated red cells [Unknown]
  - Therapy interrupted [Not Recovered/Not Resolved]
  - Red cell distribution width increased [Unknown]
  - Neutrophil count increased [Unknown]
  - Tic [Unknown]

NARRATIVE: CASE EVENT DATE: 20230601
